FAERS Safety Report 13539164 (Version 1)
Quarter: 2017Q2

REPORT INFORMATION
  Report Type: Spontaneous
  Country: US (occurrence: US)
  Receive Date: 20170512
  Receipt Date: 20170512
  Transmission Date: 20170830
  Serious: Yes (Other)
  Sender: FDA-Public Use
  Company Number: US-ACCORD-051319

PATIENT
  Age: 7 Decade
  Sex: Female

DRUGS (1)
  1. CISPLATIN. [Suspect]
     Active Substance: CISPLATIN
     Indication: VULVAR ADENOCARCINOMA

REACTIONS (3)
  - Neutropenia [Unknown]
  - Skin exfoliation [Unknown]
  - Off label use [Unknown]
